FAERS Safety Report 25768176 (Version 1)
Quarter: 2025Q3

REPORT INFORMATION
  Report Type: Spontaneous
  Country: US (occurrence: US)
  Receive Date: 20250905
  Receipt Date: 20250905
  Transmission Date: 20251020
  Serious: No
  Sender: DOMPE FARMACEUTICI
  Company Number: US-FARMAPROD-202506-1871

PATIENT
  Sex: Male
  Weight: 58.97 kg

DRUGS (8)
  1. OXERVATE [Suspect]
     Active Substance: CENEGERMIN-BKBJ
     Indication: Neurotrophic keratopathy
     Route: 047
     Dates: start: 20250423
  2. ATORVASTATIN CALCIUM [Concomitant]
     Active Substance: ATORVASTATIN CALCIUM
  3. GABAPENTIN [Concomitant]
     Active Substance: GABAPENTIN
  4. XIIDRA [Concomitant]
     Active Substance: LIFITEGRAST
  5. OMEPRAZOLE [Concomitant]
     Active Substance: OMEPRAZOLE
  6. FINASTERIDE [Concomitant]
     Active Substance: FINASTERIDE
  7. OXYBUTYNIN CHLORIDE [Concomitant]
     Active Substance: OXYBUTYNIN CHLORIDE
  8. TAMSULOSIN HYDROCHLORIDE [Concomitant]
     Active Substance: TAMSULOSIN HYDROCHLORIDE

REACTIONS (1)
  - Eye irritation [Unknown]
